FAERS Safety Report 7228833-7 (Version None)
Quarter: 2011Q1

REPORT INFORMATION
  Report Type: 
  Country: None (occurrence: None)
  Receive Date: 20110117
  Receipt Date: 20101217
  Transmission Date: 20110831
  Serious: Yes (Hospitalization)
  Sender: FDA-Public Use
  Company Number: US-BAYER-200934709NA

PATIENT
  Sex: Female
  Weight: 109 kg

DRUGS (7)
  1. MACROBID [Concomitant]
     Route: 065
  2. OCELLA [Suspect]
     Indication: CONTRACEPTION
     Dosage: PER PHARMACY RECORDS: OCELLA 3/0.03 MG TAB PRESCRIPTION WAS FILLED APR 2009-JUL 2009
     Route: 048
     Dates: start: 20090401, end: 20090701
  3. ZITHROMAX [Concomitant]
     Route: 065
  4. METOPORAL NOS [Concomitant]
     Route: 065
  5. TOPAMAX [Concomitant]
     Route: 065
  6. UNCODEABLE ^UNCLASSIFIABLE^ [Concomitant]
  7. ALEVE [Concomitant]
     Route: 065

REACTIONS (8)
  - HEADACHE [None]
  - NAUSEA [None]
  - PAIN [None]
  - HEMICEPHALALGIA [None]
  - DIZZINESS [None]
  - CONVULSION [None]
  - CEREBROVASCULAR ACCIDENT [None]
  - VOMITING [None]
